FAERS Safety Report 5357998-7 (Version None)
Quarter: 2007Q2

REPORT INFORMATION
  Report Type: 
  Country: None (occurrence: None)
  Receive Date: 20070530
  Receipt Date: 20061207
  Transmission Date: 20071010
  Serious: Yes (Hospitalization)
  Sender: FDA-Public Use
  Company Number: US200612001650

PATIENT
  Age: 52 Year
  Sex: Male

DRUGS (3)
  1. ZYPREXA [Suspect]
     Dosage: 30 MG
     Dates: end: 20061205
  2. DEPAKOTE [Concomitant]
  3. ADDERALL (AMFETAMINE ASPARTATE, AMFETAMINE SULFATE, DEXAMFETAMINE SACC [Concomitant]

REACTIONS (4)
  - HYPERPYREXIA [None]
  - NEUROLEPTIC MALIGNANT SYNDROME [None]
  - PRESCRIBED OVERDOSE [None]
  - PSYCHOTIC DISORDER [None]
